FAERS Safety Report 25854969 (Version 1)
Quarter: 2025Q3

REPORT INFORMATION
  Report Type: Spontaneous
  Country: US (occurrence: US)
  Receive Date: 20250927
  Receipt Date: 20250927
  Transmission Date: 20251020
  Serious: No
  Sender: SANOFI AVENTIS
  Company Number: US-SA-2025SA287755

PATIENT
  Age: 69 Year

DRUGS (1)
  1. SOLIQUA 100/33 [Suspect]
     Active Substance: INSULIN GLARGINE\LIXISENATIDE
     Indication: Blood glucose increased

REACTIONS (2)
  - Motor dysfunction [Unknown]
  - Somnolence [Unknown]

NARRATIVE: CASE EVENT DATE: 20250901
